FAERS Safety Report 7073082-9 (Version None)
Quarter: 2010Q4

REPORT INFORMATION
  Report Type: 
  Country: None (occurrence: None)
  Receive Date: 20101029
  Receipt Date: 20100601
  Transmission Date: 20110411
  Serious: No
  Sender: FDA-Public Use
  Company Number: A0856099A

PATIENT
  Age: 68 Year
  Sex: Female

DRUGS (9)
  1. ADVAIR DISKUS 100/50 [Suspect]
     Indication: ASTHMA
     Dosage: 1PUFF TWICE PER DAY
     Route: 055
     Dates: start: 20100318, end: 20100402
  2. PRILOSEC [Concomitant]
  3. LUMIGAN [Concomitant]
  4. ARMOUR THYROID [Concomitant]
  5. LORATADINE [Concomitant]
     Dosage: 10MG AS REQUIRED
     Route: 048
  6. VITAMIN D [Concomitant]
     Dosage: 2000UNIT PER DAY
     Route: 048
  7. LOVAZA [Concomitant]
     Dosage: 1000MG PER DAY
     Route: 048
  8. CALCIUM CARBONATE + MAGNESIUM CARBONATE [Concomitant]
     Dosage: 1TAB PER DAY
     Route: 048
  9. L-LYSINE [Concomitant]
     Dosage: 500MG PER DAY
     Route: 048

REACTIONS (4)
  - APHONIA [None]
  - COUGH [None]
  - DIZZINESS [None]
  - DYSPHONIA [None]
